FAERS Safety Report 18829312 (Version 1)
Quarter: 2021Q1

REPORT INFORMATION
  Report Type: Spontaneous
  Country: US (occurrence: US)
  Receive Date: 20210201
  Receipt Date: 20210201
  Transmission Date: 20210419
  Serious: No
  Sender: FDA-Public Use
  Company Number: US-ABBVIE-20K-163-3577248-00

PATIENT
  Age: 73 Year
  Sex: Female
  Weight: 72.64 kg

DRUGS (13)
  1. FLEXERIL [Concomitant]
     Active Substance: CYCLOBENZAPRINE HYDROCHLORIDE
     Indication: MYALGIA
  2. ALLEGRA [Concomitant]
     Active Substance: FEXOFENADINE HYDROCHLORIDE
     Indication: HYPERSENSITIVITY
  3. SUDOGEST [Concomitant]
     Active Substance: PSEUDOEPHEDRINE HYDROCHLORIDE
     Indication: HYPERSENSITIVITY
  4. ACTONEL [Concomitant]
     Active Substance: RISEDRONATE SODIUM
     Indication: OSTEOPOROSIS
  5. TRAMADOL. [Concomitant]
     Active Substance: TRAMADOL
     Indication: PAIN
  6. ESTRIOL [Concomitant]
     Active Substance: ESTRIOL
     Indication: HORMONE THERAPY
     Dosage: FOR VAGINAL
  7. SPIRONOLACTONE. [Concomitant]
     Active Substance: SPIRONOLACTONE
     Indication: ANDROGENS ABNORMAL
  8. CARTIA XT [Concomitant]
     Active Substance: DILTIAZEM HYDROCHLORIDE
     Indication: HEART RATE INCREASED
  9. HUMIRA [Suspect]
     Active Substance: ADALIMUMAB
     Indication: CROHN^S DISEASE
     Route: 058
     Dates: start: 2017
  10. FLEXERIL [Concomitant]
     Active Substance: CYCLOBENZAPRINE HYDROCHLORIDE
     Indication: MUSCLE SPASMS
  11. TRAZODONE [Concomitant]
     Active Substance: TRAZODONE HYDROCHLORIDE
     Indication: SLEEP DISORDER
  12. SYNTHROID [Concomitant]
     Active Substance: LEVOTHYROXINE SODIUM
     Indication: HYPOTHYROIDISM
  13. MESALAMINE. [Concomitant]
     Active Substance: MESALAMINE
     Indication: GASTROINTESTINAL DISORDER

REACTIONS (5)
  - Wrong technique in product usage process [Recovered/Resolved]
  - Fatigue [Not Recovered/Not Resolved]
  - Injection site swelling [Recovered/Resolved with Sequelae]
  - Incorrect dose administered [Recovered/Resolved]
  - Injection site pruritus [Recovered/Resolved with Sequelae]

NARRATIVE: CASE EVENT DATE: 2017
